FAERS Safety Report 25281770 (Version 1)
Quarter: 2025Q2

REPORT INFORMATION
  Report Type: Spontaneous
  Country: US (occurrence: US)
  Receive Date: 20250508
  Receipt Date: 20250508
  Transmission Date: 20250716
  Serious: No
  Sender: BRISTOL-MYERS SQUIBB COMPANY
  Company Number: US-BRISTOL-MYERS SQUIBB COMPANY-2025-067043

PATIENT
  Age: 46 Year
  Sex: Female

DRUGS (1)
  1. ZEPOSIA [Suspect]
     Active Substance: OZANIMOD HYDROCHLORIDE
     Indication: Multiple sclerosis
     Dosage: 7DAY STARTER PAK
     Route: 048
     Dates: start: 202501

REACTIONS (3)
  - Procedural pain [Not Recovered/Not Resolved]
  - Procedural headache [Not Recovered/Not Resolved]
  - Post procedural complication [Not Recovered/Not Resolved]
